FAERS Safety Report 8553598-6 (Version None)
Quarter: 2012Q3

REPORT INFORMATION
  Report Type: 
  Country: None (occurrence: None)
  Receive Date: 20120719
  Receipt Date: 20120713
  Transmission Date: 20120928
  Serious: Yes (Other)
  Sender: FDA-Public Use
  Company Number: 2012032820

PATIENT
  Sex: Male

DRUGS (11)
  1. SPIRIVA [Concomitant]
  2. DARVOCET-N 100 [Concomitant]
  3. ROBITUSSIN DM (ROBITUSSIN) [Concomitant]
  4. ZYRTEC [Concomitant]
  5. TYLENOL P (PARACETAMOL) [Concomitant]
  6. ALBUTEROL [Concomitant]
  7. SINGULAIR [Concomitant]
  8. ZEMAIRA [Suspect]
     Indication: ALPHA-1 ANTI-TRYPSIN DEFICIENCY
     Dosage: STARTED IN 2009, INTRAVENOUS
     Route: 042
  9. LIDODERM [Concomitant]
  10. ZETIA [Concomitant]
  11. ADVAIR HFA [Concomitant]

REACTIONS (2)
  - BLOOD GLUCOSE INCREASED [None]
  - DIZZINESS [None]
